FAERS Safety Report 22371727 (Version 1)
Quarter: 2023Q2

REPORT INFORMATION
  Report Type: Spontaneous
  Country: IT (occurrence: IT)
  Receive Date: 20230526
  Receipt Date: 20230526
  Transmission Date: 20230722
  Serious: Yes (Hospitalization)
  Sender: FDA-Public Use
  Company Number: IT-MYLANLABS-2023M1054499

PATIENT
  Age: 2 Day
  Sex: Female
  Weight: 3.6 kg

DRUGS (1)
  1. LEVETIRACETAM [Suspect]
     Active Substance: LEVETIRACETAM
     Indication: Neonatal seizure
     Dosage: UNK
     Route: 065

REACTIONS (1)
  - Drug ineffective [Unknown]
